FAERS Safety Report 15695601 (Version 1)
Quarter: 2018Q4

REPORT INFORMATION
  Report Type: Spontaneous
  Country: JP (occurrence: JP)
  Receive Date: 20181206
  Receipt Date: 20181206
  Transmission Date: 20190205
  Serious: Yes (Other)
  Sender: FDA-Public Use
  Company Number: JP-PFIZER INC-2018499860

PATIENT
  Sex: Female

DRUGS (1)
  1. IBRANCE [Suspect]
     Active Substance: PALBOCICLIB
     Indication: BREAST CANCER RECURRENT
     Dosage: 125 MG, DAILY
     Route: 048
     Dates: start: 20181108

REACTIONS (3)
  - Dysphonia [Not Recovered/Not Resolved]
  - White blood cell count decreased [Unknown]
  - Paralysis recurrent laryngeal nerve [Unknown]

NARRATIVE: CASE EVENT DATE: 20181122
